FAERS Safety Report 6034547-1 (Version None)
Quarter: 2009Q1

REPORT INFORMATION
  Report Type: 
  Country: None (occurrence: None)
  Receive Date: 20090108
  Receipt Date: 20090108
  Transmission Date: 20090719
  Serious: No
  Sender: FDA-Public Use
  Company Number: None

PATIENT
  Sex: Female
  Weight: 55 kg

DRUGS (12)
  1. TAXOTERE [Suspect]
     Dosage: 504 MG
     Dates: end: 20081126
  2. DURAGESIC-100 [Concomitant]
  3. GABAPENTIN [Concomitant]
  4. PREDNISONE TAB [Concomitant]
  5. AMBIEN [Concomitant]
  6. BACTRIM [Concomitant]
  7. CLONAZEPAM [Concomitant]
  8. DIAUDID [Concomitant]
  9. FLAGYL [Concomitant]
  10. REGLAN [Concomitant]
  11. SYNTHROID [Concomitant]
  12. ZOFRAN [Concomitant]

REACTIONS (6)
  - COLONIC FISTULA [None]
  - DIVERTICULAR PERFORATION [None]
  - FEMALE GENITAL TRACT FISTULA [None]
  - VAGINAL DISCHARGE [None]
  - VAGINAL EROSION [None]
  - VAGINAL HAEMORRHAGE [None]
